FAERS Safety Report 16454188 (Version 3)
Quarter: 2020Q4

REPORT INFORMATION
  Report Type: Spontaneous
  Country: US (occurrence: US)
  Receive Date: 20190619
  Receipt Date: 20201221
  Transmission Date: 20210113
  Serious: No
  Sender: FDA-Public Use
  Company Number: US-PFIZER INC-2019243059

PATIENT
  Age: 69 Year
  Sex: Male
  Weight: 122.4 kg

DRUGS (2)
  1. BOSUTINIB [Suspect]
     Active Substance: BOSUTINIB
     Dosage: 100 MG, UNK
  2. BOSUTINIB [Suspect]
     Active Substance: BOSUTINIB
     Indication: LEUKAEMIA
     Dosage: 400 MG, 1X/DAY
     Route: 048
     Dates: start: 20190517, end: 20190531

REACTIONS (9)
  - Sinusitis [Recovered/Resolved]
  - Abdominal pain upper [Recovering/Resolving]
  - Diarrhoea [Recovered/Resolved]
  - Faeces discoloured [Unknown]
  - Musculoskeletal chest pain [Recovering/Resolving]
  - Headache [Recovered/Resolved]
  - Flushing [Unknown]
  - Illness [Unknown]
  - Wrong technique in product usage process [Unknown]

NARRATIVE: CASE EVENT DATE: 20190518
